FAERS Safety Report 19504288 (Version 4)
Quarter: 2021Q4

REPORT INFORMATION
  Report Type: Report from Study
  Country: JP (occurrence: JP)
  Receive Date: 20210708
  Receipt Date: 20211223
  Transmission Date: 20220303
  Serious: Yes (Hospitalization, Other)
  Sender: FDA-Public Use
  Company Number: JP-KYOWAKIRIN-2021AKK011967

PATIENT
  Age: 90 Year
  Sex: Male

DRUGS (7)
  1. DARBEPOETIN ALFA [Suspect]
     Active Substance: DARBEPOETIN ALFA
     Indication: Myelodysplastic syndrome
     Dosage: 180 MICROGRAM
     Route: 058
     Dates: start: 20170908, end: 20170908
  2. DARBEPOETIN ALFA [Suspect]
     Active Substance: DARBEPOETIN ALFA
     Dosage: 180 MICROGRAM, Q4WK
     Route: 058
     Dates: start: 20171027, end: 20171124
  3. DARBEPOETIN ALFA [Suspect]
     Active Substance: DARBEPOETIN ALFA
     Dosage: 180 MICROGRAM
     Route: 058
     Dates: start: 20180817
  4. METHENOLONE ACETATE [Concomitant]
     Active Substance: METHENOLONE ACETATE
     Indication: Myelodysplastic syndrome
     Dosage: 5 MILLIGRAM
     Route: 048
  5. NICORANDIL [Concomitant]
     Active Substance: NICORANDIL
     Indication: Angina pectoris
     Dosage: 10 MILLIGRAM
     Route: 048
  6. ESOMEPRAZOLE MAGNESIUM [Concomitant]
     Active Substance: ESOMEPRAZOLE MAGNESIUM
     Indication: Gastric ulcer
     Dosage: 20 MILLIGRAM
     Route: 048
  7. MAGNESIUM OXIDE [Concomitant]
     Active Substance: MAGNESIUM OXIDE
     Indication: Constipation
     Dosage: 990 MILLIGRAM
     Route: 048

REACTIONS (3)
  - Death [Unknown]
  - Gastric cancer [Recovering/Resolving]
  - Bile duct stone [Recovering/Resolving]

NARRATIVE: CASE EVENT DATE: 20171201
